FAERS Safety Report 4829189-7 (Version None)
Quarter: 2005Q4

REPORT INFORMATION
  Report Type: 
  Country: None (occurrence: None)
  Receive Date: 20051028
  Receipt Date: 20050912
  Transmission Date: 20060501
  Serious: Yes (Other)
  Sender: FDA-Public Use
  Company Number: US_0502112220

PATIENT
  Age: 45 Year
  Sex: Female
  Weight: 86 kg

DRUGS (24)
  1. EVISTA [Suspect]
     Indication: OSTEOPENIA
     Dosage: 60 MG/1 DAY
     Dates: start: 20041122
  2. ZYPREXA [Suspect]
     Dosage: 10 MG/1 DAY
     Dates: start: 20020613, end: 20040625
  3. SEROQUEL [Concomitant]
  4. LITHIUM [Concomitant]
  5. ZOLOFT [Concomitant]
  6. SYMBYAX [Suspect]
  7. CALCIUM CITRATE WITH VITAMIN D [Concomitant]
  8. ACETAMINOPHEN AND CODEINE NO. 3 [Concomitant]
  9. PHENARGAN (PROMETHAZINE HYDROCHLORIDE) [Concomitant]
  10. ALBUTEROL [Concomitant]
  11. IBUPROFEN [Concomitant]
  12. STARLIX [Concomitant]
  13. SINGULAIR [Concomitant]
  14. LAMICTAL [Concomitant]
  15. CELEBREX [Concomitant]
  16. FLUTICASONE [Concomitant]
  17. SALMETEROL [Concomitant]
  18. ARTANE [Concomitant]
  19. INDERAL [Concomitant]
  20. BUPROPION HCL [Concomitant]
  21. LORATADINE [Concomitant]
  22. ROFECOXIB [Concomitant]
  23. RANITIDINE [Concomitant]
  24. PERDNISONE (PREDNISONE) [Concomitant]

REACTIONS (20)
  - ALANINE AMINOTRANSFERASE INCREASED [None]
  - ASPARTATE AMINOTRANSFERASE INCREASED [None]
  - BLOOD ALKALINE PHOSPHATASE INCREASED [None]
  - BLOOD CALCIUM INCREASED [None]
  - COUGH [None]
  - DIABETES MELLITUS [None]
  - DIABETIC COMA [None]
  - DYSPNOEA [None]
  - FATIGUE [None]
  - HEADACHE [None]
  - HEPATIC STEATOSIS [None]
  - HOT FLUSH [None]
  - HYPERGLYCAEMIA [None]
  - HYPOGLYCAEMIA [None]
  - INTERVERTEBRAL DISC DEGENERATION [None]
  - KETOACIDOSIS [None]
  - PEPTIC ULCER [None]
  - SPONDYLOLISTHESIS [None]
  - SYNCOPE [None]
  - WHEEZING [None]
